FAERS Safety Report 9153119 (Version 2)
Quarter: 2013Q2

REPORT INFORMATION
  Report Type: Spontaneous
  Country: BR (occurrence: BR)
  Receive Date: 20130311
  Receipt Date: 20130418
  Transmission Date: 20140414
  Serious: Yes (Other)
  Sender: FDA-Public Use
  Company Number: BR-AMGEN-BRASP2012054656

PATIENT
  Age: 41 Year
  Sex: Female
  Weight: 83 kg

DRUGS (1)
  1. ENBREL [Suspect]
     Indication: RHEUMATOID ARTHRITIS
     Dosage: 50 MG, ONCE WEEKLY
     Route: 058
     Dates: start: 201202

REACTIONS (4)
  - Retinal detachment [Unknown]
  - Needle issue [Unknown]
  - Injection site pain [Unknown]
  - Injection site discomfort [Unknown]
